FAERS Safety Report 11211218 (Version 1)
Quarter: 2015Q2

REPORT INFORMATION
  Report Type: Spontaneous
  Country: US (occurrence: None)
  Receive Date: 20150619
  Receipt Date: 20150619
  Transmission Date: 20150821
  Serious: Yes (Hospitalization)
  Sender: FDA-Public Use
  Company Number: None

PATIENT
  Age: 80 Year
  Sex: Female
  Weight: 113.2 kg

DRUGS (10)
  1. PERCOCET [Concomitant]
     Active Substance: ACETAMINOPHEN\OXYCODONE HYDROCHLORIDE
  2. PREDNISONE. [Concomitant]
     Active Substance: PREDNISONE
  3. FENTANYL. [Concomitant]
     Active Substance: FENTANYL
  4. COZAAR [Concomitant]
     Active Substance: LOSARTAN POTASSIUM
  5. KDUR [Concomitant]
  6. ALPRAZOLAM. [Concomitant]
     Active Substance: ALPRAZOLAM
  7. LANTUS [Suspect]
     Active Substance: INSULIN GLARGINE
     Indication: DIABETES MELLITUS
     Dosage: 60 UNITS NIGHTLY SQ?CHRONIC
  8. FUROSEMIDE. [Concomitant]
     Active Substance: FUROSEMIDE
  9. DUONEB [Concomitant]
     Active Substance: ALBUTEROL SULFATE\IPRATROPIUM BROMIDE
  10. LYRICA [Concomitant]
     Active Substance: PREGABALIN

REACTIONS (5)
  - Rhabdomyolysis [None]
  - Fall [None]
  - Hypoglycaemia [None]
  - Decreased appetite [None]
  - Fatigue [None]

NARRATIVE: CASE EVENT DATE: 20150319
